FAERS Safety Report 20165761 (Version 3)
Quarter: 2024Q2

REPORT INFORMATION
  Report Type: Spontaneous
  Country: DE (occurrence: DE)
  Receive Date: 20211209
  Receipt Date: 20240516
  Transmission Date: 20240717
  Serious: Yes (Death, Hospitalization, Other)
  Sender: FDA-Public Use
  Company Number: DE-VERTEX PHARMACEUTICALS-2021-019134

PATIENT
  Age: 22 Year
  Sex: Male

DRUGS (7)
  1. ELEXACAFTOR\IVACAFTOR\TEZACAFTOR [Suspect]
     Active Substance: ELEXACAFTOR\IVACAFTOR\TEZACAFTOR
     Indication: Cystic fibrosis
     Dosage: FREQUENCY UNKNOWN
     Route: 048
     Dates: start: 202010
  2. ELEXACAFTOR\IVACAFTOR\TEZACAFTOR [Suspect]
     Active Substance: ELEXACAFTOR\IVACAFTOR\TEZACAFTOR
     Dosage: RESTARTED AT HALF DOSE
     Route: 048
     Dates: end: 202110
  3. KALYDECO [Suspect]
     Active Substance: IVACAFTOR
     Indication: Cystic fibrosis
     Dosage: EVENING DOSE
     Route: 048
     Dates: start: 202010, end: 202110
  4. COLISTIN [Concomitant]
     Active Substance: COLISTIN
     Dosage: UNK
  5. COLISTIN [Concomitant]
     Active Substance: COLISTIN
     Dosage: UNK
     Route: 042
     Dates: start: 202110
  6. LEVOFLOXACIN [Concomitant]
     Active Substance: LEVOFLOXACIN
  7. URSODIOL [Concomitant]
     Active Substance: URSODIOL

REACTIONS (12)
  - Shock haemorrhagic [Fatal]
  - Muscle atrophy [Unknown]
  - Lipodystrophy acquired [Unknown]
  - Transaminases increased [Unknown]
  - Blood creatine phosphokinase increased [Unknown]
  - Infective pulmonary exacerbation of cystic fibrosis [Fatal]
  - Respiratory failure [Not Recovered/Not Resolved]
  - Acute on chronic liver failure [Fatal]
  - Hepatic cirrhosis [Not Recovered/Not Resolved]
  - Septic shock [Not Recovered/Not Resolved]
  - Metabolic acidosis [Not Recovered/Not Resolved]
  - Duodenal ulcer haemorrhage [Not Recovered/Not Resolved]

NARRATIVE: CASE EVENT DATE: 20200101
